FAERS Safety Report 19064110 (Version 2)
Quarter: 2021Q2

REPORT INFORMATION
  Report Type: Spontaneous
  Country: FR (occurrence: FR)
  Receive Date: 20210326
  Receipt Date: 20210406
  Transmission Date: 20210717
  Serious: Yes (Disabling)
  Sender: FDA-Public Use
  Company Number: FR-PFIZER INC-2021272505

PATIENT
  Age: 84 Year
  Sex: Female
  Weight: 55 kg

DRUGS (3)
  1. RITUXIMAB. [Suspect]
     Active Substance: RITUXIMAB
     Dosage: UNK
  2. PREGABALIN. [Suspect]
     Active Substance: PREGABALIN
     Dosage: UNK
  3. COMIRNATY [Suspect]
     Active Substance: TOZINAMERAN
     Indication: COVID-19 IMMUNISATION
     Dosage: SINGLE DOSE
     Route: 030
     Dates: start: 20210212, end: 20210212

REACTIONS (3)
  - Polyneuropathy [Not Recovered/Not Resolved]
  - Neuralgia [Not Recovered/Not Resolved]
  - Disease recurrence [Not Recovered/Not Resolved]

NARRATIVE: CASE EVENT DATE: 20210213
